FAERS Safety Report 6693282-7 (Version None)
Quarter: 2010Q2

REPORT INFORMATION
  Report Type: 
  Country: None (occurrence: None)
  Receive Date: 20100421
  Receipt Date: 20100421
  Transmission Date: 20101027
  Serious: Yes (Hospitalization)
  Sender: FDA-Public Use
  Company Number: None

PATIENT
  Age: 47 Year
  Sex: Female
  Weight: 50.8029 kg

DRUGS (4)
  1. BENDAMUSTINE 100 MG VIALS FOR RECONSTITUTION CEPHALON [Suspect]
     Indication: BREAST CANCER METASTATIC
     Dosage: 120 MG/M2 -188.4-198.0 MG DAYS 1, 2 OF 28 DAY IV
     Route: 042
     Dates: start: 20090616, end: 20091104
  2. ERLOTINIB HYDROCHLORIDE [Suspect]
     Indication: CHEMOTHERAPY
     Dosage: 100 MG DAILY DAYS 5-21 OF 28 DAY PO
     Route: 048
     Dates: start: 20090621, end: 20091123
  3. PACLITAXEL [Concomitant]
  4. BEVACIZUMAB [Concomitant]

REACTIONS (2)
  - PNEUMOCYSTIS JIROVECI PNEUMONIA [None]
  - PULMONARY OEDEMA [None]
